FAERS Safety Report 8210197-3 (Version None)
Quarter: 2012Q1

REPORT INFORMATION
  Report Type: 
  Country: None (occurrence: None)
  Receive Date: 20120314
  Receipt Date: 20110906
  Transmission Date: 20120608
  Serious: No
  Sender: FDA-Public Use
  Company Number: US-ASTRAZENECA-2011SE53741

PATIENT
  Age: 34 Year
  Sex: Male

DRUGS (15)
  1. FLEXERIL [Concomitant]
  2. DIOVAN HCT [Concomitant]
     Dosage: 160-12.5 MG
  3. NIASPAN EXTENDED RELEASE [Concomitant]
  4. CRESTOR [Suspect]
     Route: 048
  5. JANUVIA [Concomitant]
  6. ACIPHEX [Concomitant]
  7. GLUCOTROL XL [Concomitant]
  8. LOVAZA [Concomitant]
  9. ACTOS [Concomitant]
  10. NORVASC [Concomitant]
  11. BUSPAR [Concomitant]
  12. DIOVAN [Concomitant]
  13. NEURONTIN [Concomitant]
  14. TOPAMAX [Concomitant]
  15. TOPROL-XL [Suspect]
     Route: 048

REACTIONS (7)
  - DIABETES MELLITUS INADEQUATE CONTROL [None]
  - ESSENTIAL HYPERTENSION [None]
  - MUSCULOSKELETAL PAIN [None]
  - GASTROOESOPHAGEAL REFLUX DISEASE [None]
  - ARTHRALGIA [None]
  - BLOOD CHOLESTEROL INCREASED [None]
  - DEPRESSION [None]
